FAERS Safety Report 13735746 (Version 2)
Quarter: 2017Q3

REPORT INFORMATION
  Report Type: Spontaneous
  Country: US (occurrence: US)
  Receive Date: 20170710
  Receipt Date: 20170710
  Transmission Date: 20171127
  Serious: No
  Sender: FDA-Public Use
  Company Number: US-CIPLA LTD.-2017US04419

PATIENT
  Sex: Female

DRUGS (8)
  1. GABAPENTIN. [Suspect]
     Active Substance: GABAPENTIN
     Indication: BACK PAIN
     Dosage: UNK
     Route: 065
  2. LYRICA [Suspect]
     Active Substance: PREGABALIN
     Indication: PAIN
     Dosage: UNK
     Route: 065
  3. DICLOFENAC [Suspect]
     Active Substance: DICLOFENAC
     Indication: PAIN
     Dosage: UNK
     Route: 065
  4. CELECOXIB. [Suspect]
     Active Substance: CELECOXIB
     Indication: PAIN
     Dosage: UNK
     Route: 065
  5. TRAMADOL. [Suspect]
     Active Substance: TRAMADOL
     Indication: PAIN
     Dosage: UNK
     Route: 065
  6. ORPHENADRINE [Suspect]
     Active Substance: ORPHENADRINE
     Indication: PAIN
     Dosage: UNK
     Route: 065
  7. MEDROL [Suspect]
     Active Substance: METHYLPREDNISOLONE
     Indication: PAIN
     Dosage: UNK
     Route: 065
  8. CYMBALTA [Suspect]
     Active Substance: DULOXETINE HYDROCHLORIDE
     Indication: PAIN
     Dosage: UNK
     Route: 065

REACTIONS (9)
  - Mood altered [Unknown]
  - Dizziness [Unknown]
  - Thinking abnormal [Unknown]
  - Drug ineffective [Unknown]
  - Oedema peripheral [Unknown]
  - Depression [Unknown]
  - Eye pain [Unknown]
  - Fatigue [Unknown]
  - Coordination abnormal [Unknown]
